FAERS Safety Report 8435300-1 (Version None)
Quarter: 2012Q2

REPORT INFORMATION
  Report Type: 
  Country: None (occurrence: None)
  Receive Date: 20120608
  Receipt Date: 20120608
  Transmission Date: 20120825
  Serious: Yes (Hospitalization)
  Sender: FDA-Public Use
  Company Number: None

PATIENT
  Sex: Male

DRUGS (1)
  1. SPIRIVA [Suspect]
     Indication: ASBESTOSIS
     Dosage: 100 MG ONCE A DAY UNK  OVER 1 YEAR

REACTIONS (2)
  - OCULAR HYPERAEMIA [None]
  - EYE HAEMORRHAGE [None]
